FAERS Safety Report 10220963 (Version 1)
Quarter: 2014Q2

REPORT INFORMATION
  Report Type: Spontaneous
  Country: US (occurrence: None)
  Receive Date: 20140605
  Receipt Date: 20140605
  Transmission Date: 20141212
  Serious: No
  Sender: FDA-Public Use
  Company Number: None

PATIENT
  Age: 25 Year
  Sex: Female
  Weight: 88.91 kg

DRUGS (2)
  1. TOPIRAMATE [Suspect]
     Indication: HEADACHE
     Dosage: 1 PILL ONCE DAILY TAKEN BY MOUTH
     Route: 048
     Dates: start: 20140416, end: 20140416
  2. TOPIRAMATE [Suspect]
     Indication: PROPHYLAXIS
     Dosage: 1 PILL ONCE DAILY TAKEN BY MOUTH
     Route: 048
     Dates: start: 20140416, end: 20140416

REACTIONS (2)
  - Angle closure glaucoma [None]
  - Intraocular pressure increased [None]
